FAERS Safety Report 21680794 (Version 1)
Quarter: 2022Q4

REPORT INFORMATION
  Report Type: Report from Study
  Country: US (occurrence: US)
  Receive Date: 20221205
  Receipt Date: 20221205
  Transmission Date: 20230112
  Serious: No
  Sender: FDA-Public Use
  Company Number: US-ABBVIE-4191841

PATIENT
  Sex: Male

DRUGS (1)
  1. HUMIRA [Suspect]
     Active Substance: ADALIMUMAB
     Indication: Product used for unknown indication
     Dosage: ALL EVENT ONSET: 2022
     Route: 058
     Dates: start: 20221010

REACTIONS (3)
  - Drug ineffective [Unknown]
  - Adverse food reaction [Unknown]
  - Unevaluable event [Unknown]
